FAERS Safety Report 8979660 (Version 1)
Quarter: 2012Q4

REPORT INFORMATION
  Report Type: 
  Country: MX (occurrence: MX)
  Receive Date: 20121221
  Receipt Date: 20121221
  Transmission Date: 20130627
  Serious: Yes (Other)
  Sender: FDA-Public Use
  Company Number: PHHY2012MX091208

PATIENT
  Sex: Male

DRUGS (9)
  1. DIOVAN [Suspect]
     Indication: HYPERTENSION
     Dosage: 1 DF, (160 mg) daily
  2. GLUCOVANCE [Concomitant]
     Indication: DIABETES MELLITUS
     Dosage: 2 DF, daily
     Dates: start: 1996
  3. OMEGA 3 [Concomitant]
     Dosage: 1 DF, daily
  4. ASPIRINA [Concomitant]
     Dosage: 1 DF, daily
  5. GANFORTI [Concomitant]
     Indication: GLAUCOMA
     Dosage: 1 drp, daily
     Route: 047
     Dates: start: 201212
  6. ARTELAC [Concomitant]
     Indication: EYE LUBRICATION THERAPY
     Dosage: 1 drp, daily
     Dates: start: 201212
  7. OPTIMYCIN [Concomitant]
     Indication: EYE INFECTION
     Dosage: 1 UKN, daily
     Dates: start: 201212
  8. METFORMIN [Concomitant]
     Indication: DIABETES MELLITUS
     Dosage: 2 DF, daily
     Dates: start: 2004
  9. GLUCOBAY [Concomitant]
     Indication: DIABETES MELLITUS
     Dosage: 2 DF, daily

REACTIONS (4)
  - Diabetic retinopathy [Recovering/Resolving]
  - Blindness [Recovering/Resolving]
  - Gastritis [Recovered/Resolved]
  - Vomiting [Recovered/Resolved]
